FAERS Safety Report 6493554-5 (Version None)
Quarter: 2009Q4

REPORT INFORMATION
  Report Type: 
  Country: None (occurrence: None)
  Receive Date: 20091214
  Receipt Date: 20091202
  Transmission Date: 20100525
  Serious: Yes (Other)
  Sender: FDA-Public Use
  Company Number: JP-PFIZER INC-2009306636

PATIENT
  Sex: Male

DRUGS (2)
  1. MIGLITOL [Suspect]
     Indication: DIABETES MELLITUS
  2. INSULIN [Concomitant]
     Route: 058

REACTIONS (1)
  - HEPATIC FUNCTION ABNORMAL [None]
